FAERS Safety Report 13965549 (Version 1)
Quarter: 2017Q3

REPORT INFORMATION
  Report Type: Spontaneous
  Country: US (occurrence: US)
  Receive Date: 20170913
  Receipt Date: 20170913
  Transmission Date: 20171128
  Serious: Yes (Other)
  Sender: FDA-Public Use
  Company Number: US-PFIZER INC-2017394558

PATIENT
  Sex: Male

DRUGS (1)
  1. GABAPENTIN. [Suspect]
     Active Substance: GABAPENTIN
     Indication: SCIATICA
     Dosage: UNK

REACTIONS (4)
  - Pain in extremity [Unknown]
  - Drug ineffective for unapproved indication [Unknown]
  - Renal cancer [Unknown]
  - Neuropathy peripheral [Unknown]
